FAERS Safety Report 10609711 (Version 1)
Quarter: 2014Q4

REPORT INFORMATION
  Report Type: Spontaneous
  Country: US (occurrence: None)
  Receive Date: 20141124
  Receipt Date: 20141124
  Transmission Date: 20150529
  Serious: Yes (Death)
  Sender: FDA-Public Use
  Company Number: PR 2183

PATIENT
  Age: 77 Year
  Sex: Female

DRUGS (2)
  1. FLUMETHOLON (FLUOROMETHOLONE) [Concomitant]
  2. ZIOPTAN [Suspect]
     Active Substance: TAFLUPROST
     Indication: GLAUCOMA
     Dosage: 1 GTTSINGLE OU}
     Dates: start: 20121207, end: 20140720

REACTIONS (1)
  - Death [None]

NARRATIVE: CASE EVENT DATE: 20140720
